FAERS Safety Report 6781869-2 (Version None)
Quarter: 2010Q2

REPORT INFORMATION
  Report Type: 
  Country: None (occurrence: None)
  Receive Date: 20100618
  Receipt Date: 20100618
  Transmission Date: 20101027
  Serious: Yes (Life-Threatening, Hospitalization)
  Sender: FDA-Public Use
  Company Number: None

PATIENT
  Age: 29 Year
  Sex: Female
  Weight: 77.1115 kg

DRUGS (1)
  1. NUVARING 15/0120 ? [Suspect]
     Indication: CONTRACEPTION
     Dosage: 1 RING CHANGE Q 3 WEEKS VAG
     Route: 067
     Dates: start: 20100401, end: 20100601

REACTIONS (1)
  - PULMONARY EMBOLISM [None]
